FAERS Safety Report 4741712-X (Version None)
Quarter: 2005Q3

REPORT INFORMATION
  Report Type: 
  Country: None (occurrence: None)
  Receive Date: 20050808
  Receipt Date: 20050722
  Transmission Date: 20060218
  Serious: Yes (Other)
  Sender: FDA-Public Use
  Company Number: US_0506119426

PATIENT
  Age: 68 Year
  Sex: Male
  Weight: 80 kg

DRUGS (4)
  1. CIALIS [Suspect]
     Indication: ERECTILE DYSFUNCTION
     Dosage: 20 MG/3 WEEK
     Dates: start: 20041001, end: 20050419
  2. METFORMIN [Concomitant]
  3. RAMIPRIL [Concomitant]
  4. XENICAL [Concomitant]

REACTIONS (2)
  - DIPLOPIA [None]
  - HEMIANOPIA HETERONYMOUS [None]
